FAERS Safety Report 8402744-3 (Version None)
Quarter: 2012Q2

REPORT INFORMATION
  Report Type: 
  Country: None (occurrence: None)
  Receive Date: 20120601
  Receipt Date: 20120524
  Transmission Date: 20120825
  Serious: Yes (Hospitalization)
  Sender: FDA-Public Use
  Company Number: US-BAYER-2012-044646

PATIENT
  Age: 46 Year
  Sex: Female
  Weight: 89.796 kg

DRUGS (16)
  1. IRON [Concomitant]
     Dosage: 325 (65) MG/DAILY
     Route: 048
     Dates: start: 20090618
  2. NEXIUM [Concomitant]
     Indication: GASTROOESOPHAGEAL REFLUX DISEASE
     Dosage: 40 MG, DAILY
     Route: 048
     Dates: start: 20021001
  3. SPIRONOLACTONE [Concomitant]
     Dosage: 25 MG/DAILY
     Route: 048
  4. FLEXERIL [Concomitant]
     Dosage: 5 MG, HS
     Route: 048
     Dates: start: 20100326
  5. ALBUTEROL [Concomitant]
     Dosage: 90 MCG/2 PUFFS EVERY 4-6 HOURS AS NEEDED
     Route: 045
     Dates: start: 20091026, end: 20100910
  6. YAZ [Suspect]
     Indication: MENSTRUATION IRREGULAR
  7. ADVAIR DISKUS 100/50 [Concomitant]
     Indication: ASTHMA
     Dosage: 250-50 MCG/2 PUFFS MORNING AND EVENING
     Route: 045
     Dates: start: 20021001
  8. NAPROXEN [Concomitant]
     Dosage: 500 MG/2 TIMES EVERY DAY WITH FOOD
     Route: 048
     Dates: start: 20100326
  9. YAZ [Suspect]
     Indication: HIRSUTISM
     Dosage: UNK
     Dates: start: 20100119, end: 20100621
  10. METFORMIN HCL [Concomitant]
     Indication: DIABETES MELLITUS
     Dosage: 500 MG, TID
     Route: 048
     Dates: start: 20021001
  11. OSCAL D [CALCIUM CARBONATE,VITAMIN D NOS] [Concomitant]
     Dosage: ONE TABLET/DAILY
     Route: 048
     Dates: start: 20080101
  12. MOTRIN [Concomitant]
     Dosage: 800 MG, TID WITH FOOD
     Route: 048
     Dates: start: 20100420
  13. LORATADINE [Concomitant]
     Dosage: 10 MG, DAILY
     Route: 048
     Dates: start: 20090618
  14. LEVOXYL [Concomitant]
     Indication: THYROIDECTOMY
     Dosage: 137 MCG/ MONDAY-FRIDAY THEN ? ON SUNDAY
     Route: 048
     Dates: start: 20020901
  15. MULTI-VITAMIN [Concomitant]
     Indication: MEDICAL DIET
     Dosage: ONE TABLET/DAILY
     Route: 048
     Dates: start: 20080101
  16. GABAPENTIN [Concomitant]
     Dosage: 100 MG/EVERYDAY
     Route: 048

REACTIONS (8)
  - PAIN IN EXTREMITY [None]
  - OEDEMA [None]
  - DEEP VEIN THROMBOSIS [None]
  - HAEMATOMA [None]
  - INJURY [None]
  - MENTAL DISORDER [None]
  - EMOTIONAL DISTRESS [None]
  - PAIN [None]
